FAERS Safety Report 8012057-X (Version None)
Quarter: 2011Q4

REPORT INFORMATION
  Report Type: 
  Country: None (occurrence: None)
  Receive Date: 20111228
  Receipt Date: 20111221
  Transmission Date: 20120403
  Serious: Yes (Death, Other)
  Sender: FDA-Public Use
  Company Number: KP-GENZYME-CAMP-1001035

PATIENT
  Age: 41 Year
  Sex: Male

DRUGS (4)
  1. TRIMETHOPRIM + SULFAMETHOXAZOLE [Concomitant]
     Indication: INFECTION PROPHYLAXIS
     Dosage: UNK
     Route: 048
  2. VALACICLOVIR [Concomitant]
     Indication: INFECTION PROPHYLAXIS
     Dosage: UNK
     Route: 048
  3. CAMPATH [Suspect]
     Dosage: 30 MG ON DAYS 3, 5, AND 7 OF 3-WEEK CYCLE
     Route: 042
  4. CAMPATH [Suspect]
     Indication: DIFFUSE LARGE B-CELL LYMPHOMA
     Dosage: 10 MG ON DAY 1 OF 3-WEEK CYCLE
     Route: 042

REACTIONS (7)
  - CYTOMEGALOVIRUS MUCOCUTANEOUS ULCER [None]
  - LYMPHOPENIA [None]
  - ANAEMIA [None]
  - NEUTROPENIA [None]
  - THROMBOCYTOPENIA [None]
  - CYTOMEGALOVIRUS TEST POSITIVE [None]
  - DIFFUSE LARGE B-CELL LYMPHOMA [None]
